FAERS Safety Report 23971891 (Version 3)
Quarter: 2024Q3

REPORT INFORMATION
  Report Type: Spontaneous
  Country: JP (occurrence: JP)
  Receive Date: 20240613
  Receipt Date: 20240731
  Transmission Date: 20241016
  Serious: Yes (Other)
  Sender: AMGEN
  Company Number: JP-PFIZER INC-PV202400057990

PATIENT
  Age: 81 Year
  Sex: Female
  Weight: 56.4 kg

DRUGS (7)
  1. ENBREL [Suspect]
     Active Substance: BENZYL ALCOHOL\ETANERCEPT
     Indication: Rheumatoid arthritis
     Dosage: 25 MG, ONCE EVERY TEN DAYS
     Route: 058
     Dates: start: 202311, end: 20240501
  2. IGURATIMOD [Concomitant]
     Active Substance: IGURATIMOD
     Indication: Rheumatoid arthritis
     Dosage: 25 MG, 1X/DAY(MORNING)
     Route: 065
  3. ELDECALCITOL [Concomitant]
     Active Substance: ELDECALCITOL
     Indication: Osteoporosis
     Dosage: 0.75 UG, 1X/DAY(MORNING)
     Route: 065
  4. PROGRAF [Concomitant]
     Active Substance: TACROLIMUS
     Indication: Rheumatoid arthritis
     Dosage: 2 MG, 1X/DAY(MORNING)
     Route: 065
  5. PREDNISOLONE [Concomitant]
     Active Substance: PREDNISOLONE
     Indication: Rheumatoid arthritis
     Dosage: 1 MG, 1X/DAY(MORNING)
     Route: 065
  6. AMLODIPINE [Concomitant]
     Active Substance: AMLODIPINE BESYLATE
     Indication: Hypertension
     Dosage: 2.5 MG, 1X/DAY(MORNING)
     Route: 065
  7. FURSULTIAMINE [Concomitant]
     Active Substance: FURSULTIAMINE
     Indication: Hypovitaminosis
     Dosage: 50 MG, 1X/DAY(MORNING)
     Route: 065

REACTIONS (3)
  - Drug dose omission by device [Not Recovered/Not Resolved]
  - Device delivery system issue [Not Recovered/Not Resolved]
  - Rheumatoid arthritis [Not Recovered/Not Resolved]

NARRATIVE: CASE EVENT DATE: 20240101
